FAERS Safety Report 19055499 (Version 2)
Quarter: 2021Q2

REPORT INFORMATION
  Report Type: Spontaneous
  Country: US (occurrence: US)
  Receive Date: 20210325
  Receipt Date: 20210401
  Transmission Date: 20210717
  Serious: No
  Sender: FDA-Public Use
  Company Number: US-EPICPHARMA-2020EPC00344

PATIENT
  Age: 61 Year
  Sex: Female

DRUGS (6)
  1. IBUPROFEN. [Suspect]
     Active Substance: IBUPROFEN
     Dosage: 800 TABLETS, 4X/DAY
     Route: 048
     Dates: start: 202008, end: 2020
  2. CLINDAMYCIN HYDROCHLORIDE. [Suspect]
     Active Substance: CLINDAMYCIN HYDROCHLORIDE
     Dosage: 150 CAPSULES, 4X/DAY
     Route: 048
     Dates: start: 20200707, end: 20200713
  3. IBUPROFEN. [Suspect]
     Active Substance: IBUPROFEN
     Dosage: 800 MG, 4X/DAY
     Route: 048
     Dates: start: 202007, end: 2020
  4. CLINDAMYCIN HYDROCHLORIDE. [Suspect]
     Active Substance: CLINDAMYCIN HYDROCHLORIDE
     Dosage: 150 CAPSULES, 4X/DAY
     Route: 048
     Dates: start: 20200731, end: 20200807
  5. CLINDAMYCIN HYDROCHLORIDE. [Suspect]
     Active Substance: CLINDAMYCIN HYDROCHLORIDE
     Dosage: 150 MG, 4X/DAY
     Route: 048
     Dates: start: 202006, end: 2020
  6. NIACIN. [Concomitant]
     Active Substance: NIACIN

REACTIONS (5)
  - Gastrointestinal pain [Unknown]
  - Oral candidiasis [Unknown]
  - Drug ineffective [Unknown]
  - Endodontic procedure [Unknown]
  - Toothache [Unknown]

NARRATIVE: CASE EVENT DATE: 2020
